FAERS Safety Report 16753732 (Version 2)
Quarter: 2020Q1

REPORT INFORMATION
  Report Type: Spontaneous
  Country: US (occurrence: US)
  Receive Date: 20190829
  Receipt Date: 20200221
  Transmission Date: 20200409
  Serious: No
  Sender: FDA-Public Use
  Company Number: US-TEVA-2019-US-1098620

PATIENT
  Sex: Male

DRUGS (1)
  1. CLONAZEPAM TEVA [Suspect]
     Active Substance: CLONAZEPAM
     Indication: BACK PAIN
     Dosage: 1.5 MILLIGRAM DAILY;
     Dates: start: 2006

REACTIONS (1)
  - Product use in unapproved indication [Unknown]

NARRATIVE: CASE EVENT DATE: 2006
